FAERS Safety Report 10377010 (Version 3)
Quarter: 2014Q3

REPORT INFORMATION
  Report Type: Spontaneous
  Country: IT (occurrence: IT)
  Receive Date: 20140812
  Receipt Date: 20140902
  Transmission Date: 20150326
  Serious: Yes (Life-Threatening, Hospitalization)
  Sender: FDA-Public Use
  Company Number: IT-ROCHE-1447782

PATIENT
  Age: 27 Year
  Sex: Female

DRUGS (7)
  1. CEFIXORAL [Concomitant]
     Active Substance: CEFIXIME
     Route: 048
     Dates: start: 20140305, end: 20140305
  2. VALIUM [Suspect]
     Active Substance: DIAZEPAM
     Indication: PRODUCT USED FOR UNKNOWN INDICATION
     Route: 048
     Dates: start: 20140305, end: 20140305
  3. DEPALGOS [Suspect]
     Active Substance: ACETAMINOPHEN\OXYCODONE HYDROCHLORIDE
     Indication: PRODUCT USED FOR UNKNOWN INDICATION
     Dosage: 10+325 MG TAB COATED
     Route: 048
     Dates: start: 20140305, end: 20140305
  4. TACHIDOL [Concomitant]
     Active Substance: ACETAMINOPHEN\CODEINE PHOSPHATE
     Route: 065
     Dates: start: 20140305, end: 20140305
  5. PALEXIA [Suspect]
     Active Substance: TAPENTADOL HYDROCHLORIDE
     Indication: PRODUCT USED FOR UNKNOWN INDICATION
     Dosage: TAB 100 MG
     Route: 048
     Dates: start: 20140305, end: 20140305
  6. VALIUM [Suspect]
     Active Substance: DIAZEPAM
     Route: 048
     Dates: start: 20140308, end: 20140308
  7. DEPALGOS [Suspect]
     Active Substance: ACETAMINOPHEN\OXYCODONE HYDROCHLORIDE
     Route: 048
     Dates: start: 20140308, end: 20140308

REACTIONS (4)
  - Intentional self-injury [Unknown]
  - Psychomotor hyperactivity [Unknown]
  - Crying [Unknown]
  - Somnolence [Unknown]

NARRATIVE: CASE EVENT DATE: 20140305
